FAERS Safety Report 15835210 (Version 1)
Quarter: 2019Q1

REPORT INFORMATION
  Report Type: Spontaneous
  Country: CH (occurrence: CH)
  Receive Date: 20190116
  Receipt Date: 20190116
  Transmission Date: 20190417
  Serious: Yes (Hospitalization)
  Sender: FDA-Public Use
  Company Number: CH-NOVOPROD-641799

PATIENT
  Age: 69 Year
  Sex: Male

DRUGS (8)
  1. EXFORGE [Concomitant]
     Active Substance: AMLODIPINE BESYLATE\VALSARTAN
     Dosage: 1 TAB, QD (1-0-0 (MORNINGS); CORRECT DOSE 5MG/80MG)
     Route: 048
  2. SIMVASTATIN. [Concomitant]
     Active Substance: SIMVASTATIN
     Dosage: 40 MG, QD (0-0-1 (EVENINGS))
     Route: 048
  3. TRESIBA [Suspect]
     Active Substance: INSULIN DEGLUDEC
     Indication: TYPE 2 DIABETES MELLITUS
     Dosage: UNK (ONE SYRINGE PER DAY)
     Route: 065
     Dates: start: 20181011, end: 20181013
  4. INCRUSE ELLIPTA [Concomitant]
     Active Substance: UMECLIDINIUM BROMIDE
     Dosage: 62.5 ?G, QD (1-0-0 (MORNING)
     Route: 048
  5. TRESIBA [Suspect]
     Active Substance: INSULIN DEGLUDEC
     Dosage: UNK (RESTARTED THERAPY)
     Route: 065
  6. XARELTO [Concomitant]
     Active Substance: RIVAROXABAN
     Dosage: 20 MG, QD (0-0-1 (EVENINGS)
     Route: 048
  7. METFORMIN [Concomitant]
     Active Substance: METFORMIN HYDROCHLORIDE
     Dosage: 1000 MG, BID (1-0-1(MORNINGS AND EVENINGS)
     Route: 048
  8. RELVAR ELLIPTA                     /08236201/ [Concomitant]
     Active Substance: FLUTICASONE FUROATE\VILANTEROL TRIFENATATE
     Dosage: 1-0-0 (MORNING); CORRECT DOSE 92MCG/22MCG
     Route: 048

REACTIONS (4)
  - Cerebral infarction [Recovered/Resolved]
  - Endocarditis [Recovered/Resolved]
  - Cerebral artery embolism [Unknown]
  - Mitral valve sclerosis [Unknown]

NARRATIVE: CASE EVENT DATE: 20181014
